FAERS Safety Report 7685075-9 (Version None)
Quarter: 2011Q3

REPORT INFORMATION
  Report Type: 
  Country: None (occurrence: None)
  Receive Date: 20110729
  Receipt Date: 20110721
  Transmission Date: 20111222
  Serious: Yes (Death, Hospitalization, Other)
  Sender: FDA-Public Use
  Company Number: 200813718

PATIENT
  Sex: Female
  Weight: 74.1 kg

DRUGS (16)
  1. EVISTA [Concomitant]
  2. TACROLIMUS [Concomitant]
  3. DILTIAZEM [Concomitant]
  4. LOVASTATIN [Concomitant]
  5. ATIVAN [Concomitant]
  6. PRIVIGEN [Suspect]
     Indication: CHRONIC GRAFT VERSUS HOST DISEASE
     Dosage: SEE IMAGE
     Route: 042
     Dates: start: 20080607, end: 20080608
  7. PRIVIGEN [Suspect]
     Indication: DEMYELINATING POLYNEUROPATHY
     Dosage: SEE IMAGE
     Route: 042
     Dates: start: 20080607, end: 20080608
  8. PREDNISONE [Concomitant]
  9. PROTONIX [Concomitant]
  10. AMIODARONE HCL [Concomitant]
  11. LEVOTHYROXINE SODIUM [Concomitant]
  12. TOPROLOL (METOPROLOL SUCCINATE) [Concomitant]
  13. ACYCLOVIR [Concomitant]
  14. NYSTATIN [Concomitant]
  15. ATOVAQUONE [Concomitant]
  16. ASPIRIN [Concomitant]

REACTIONS (15)
  - DYSPNOEA [None]
  - PYREXIA [None]
  - DISEASE COMPLICATION [None]
  - CHEST DISCOMFORT [None]
  - RESPIRATORY ARREST [None]
  - SEPSIS [None]
  - DIZZINESS [None]
  - BLOOD CULTURE POSITIVE [None]
  - HAEMODIALYSIS [None]
  - RENAL FAILURE [None]
  - HAEMATURIA [None]
  - HAEMOLYTIC ANAEMIA [None]
  - ATRIAL FIBRILLATION [None]
  - INFECTION [None]
  - CARDIAC ARREST [None]
